FAERS Safety Report 9253449 (Version 5)
Quarter: 2013Q3

REPORT INFORMATION
  Report Type: Report from Study
  Country: DE (occurrence: DE)
  Receive Date: 20130425
  Receipt Date: 20130925
  Transmission Date: 20140515
  Serious: Yes (Other)
  Sender: FDA-Public Use
  Company Number: DE-BIOGENIDEC-2013BI007107

PATIENT
  Age: 27 Year
  Sex: Female
  Weight: 70 kg

DRUGS (6)
  1. BG00012 [Suspect]
     Indication: MULTIPLE SCLEROSIS
  2. MESALAZINE [Concomitant]
  3. PREDNISOLON [Concomitant]
  4. METAMIZOL [Concomitant]
  5. CITALOPRAM [Concomitant]
  6. FUMARATE [Concomitant]

REACTIONS (1)
  - Crohn^s disease [Recovered/Resolved]
